FAERS Safety Report 8376735-5 (Version None)
Quarter: 2012Q1

REPORT INFORMATION
  Report Type: 
  Country: None (occurrence: None)
  Receive Date: 20120323
  Receipt Date: 20110407
  Transmission Date: 20120608
  Serious: Yes (Other)
  Sender: FDA-Public Use
  Company Number: 163-21880-10120140

PATIENT
  Age: 69 Year
  Sex: Female

DRUGS (4)
  1. NEUPOGEN [Concomitant]
  2. REVLIMID [Suspect]
     Indication: MULTIPLE MYELOMA
     Dosage: 25 MG, 1 IN 1 D, PO 5 MG, DAILY FOR 21 DAYS, PO
     Route: 048
     Dates: start: 20110125
  3. REVLIMID [Suspect]
     Indication: MULTIPLE MYELOMA
     Dosage: 25 MG, 1 IN 1 D, PO 5 MG, DAILY FOR 21 DAYS, PO
     Route: 048
     Dates: start: 20101024, end: 20101109
  4. CIPRO [Concomitant]

REACTIONS (4)
  - MULTIPLE MYELOMA [None]
  - SPINAL COMPRESSION FRACTURE [None]
  - WHITE BLOOD CELL COUNT DECREASED [None]
  - FULL BLOOD COUNT DECREASED [None]
